FAERS Safety Report 15744404 (Version 2)
Quarter: 2018Q4

REPORT INFORMATION
  Report Type: Spontaneous
  Country: ES (occurrence: ES)
  Receive Date: 20181220
  Receipt Date: 20181220
  Transmission Date: 20190205
  Serious: Yes (Other)
  Sender: FDA-Public Use
  Company Number: PHHY2018ES189578

PATIENT
  Age: 46 Year
  Sex: Female

DRUGS (1)
  1. CICLOSPORIN [Suspect]
     Active Substance: CYCLOSPORINE
     Indication: PSORIASIS
     Dosage: 300 OT, UNK
     Route: 065

REACTIONS (1)
  - Ovarian cancer [Recovered/Resolved with Sequelae]

NARRATIVE: CASE EVENT DATE: 20170921
